FAERS Safety Report 6675156-0 (Version None)
Quarter: 2010Q2

REPORT INFORMATION
  Report Type: 
  Country: None (occurrence: None)
  Receive Date: 20100409
  Receipt Date: 20100330
  Transmission Date: 20101027
  Serious: Yes (Hospitalization, Other)
  Sender: FDA-Public Use
  Company Number: US-ELI_LILLY_AND_COMPANY-US201004000421

PATIENT
  Sex: Female

DRUGS (2)
  1. ALIMTA [Suspect]
     Indication: OVARIAN CANCER
     Dates: start: 20100316
  2. LEUCOVORIN CALCIUM [Concomitant]

REACTIONS (8)
  - BLOOD CREATININE INCREASED [None]
  - DRUG INTERACTION [None]
  - EPISTAXIS [None]
  - HAEMOGLOBIN DECREASED [None]
  - LIVER FUNCTION TEST ABNORMAL [None]
  - OFF LABEL USE [None]
  - RENAL FAILURE [None]
  - THROMBOCYTOPENIA [None]
